FAERS Safety Report 6908657-8 (Version None)
Quarter: 2010Q3

REPORT INFORMATION
  Report Type: 
  Country: None (occurrence: None)
  Receive Date: 20100805
  Receipt Date: 20100729
  Transmission Date: 20110219
  Serious: Yes (Death, Hospitalization)
  Sender: FDA-Public Use
  Company Number: A0777223A

PATIENT
  Age: 42 Year
  Sex: Male

DRUGS (1)
  1. ROSIGLITAZONE MALEATE [Suspect]
     Dosage: 4MG TWICE PER DAY
     Route: 048
     Dates: end: 19991116

REACTIONS (4)
  - CARDIAC FAILURE CONGESTIVE [None]
  - DEATH [None]
  - MYOCARDIAL INFARCTION [None]
  - PANCREATIC DISORDER [None]
